FAERS Safety Report 8315220-3 (Version None)
Quarter: 2012Q2

REPORT INFORMATION
  Report Type: 
  Country: None (occurrence: None)
  Receive Date: 20120426
  Receipt Date: 20120418
  Transmission Date: 20120825
  Serious: Yes (Death)
  Sender: FDA-Public Use
  Company Number: JP-BAYER-2012-024608

PATIENT
  Age: 79 Year
  Sex: Male
  Weight: 54 kg

DRUGS (9)
  1. LAC B [Concomitant]
     Dosage: DAILY DOSE 3 G
     Route: 048
     Dates: start: 20110804
  2. LASIX [Concomitant]
     Dosage: DAILY DOSE 20 MG
     Route: 048
     Dates: start: 20100806
  3. COLONEL [Concomitant]
     Dosage: DAILY DOSE 1500 MG
     Route: 048
     Dates: start: 20110224
  4. RABEPRAZOLE SODIUM [Concomitant]
     Dosage: DAILY DOSE 10 MG
     Route: 048
     Dates: start: 20111125
  5. RISPERDAL [Concomitant]
     Dosage: DAILY DOSE 1 MG
     Route: 048
     Dates: start: 20120126
  6. NEXAVAR [Suspect]
     Indication: HEPATIC NEOPLASM MALIGNANT
     Dosage: 400 MG, QD
     Route: 048
     Dates: start: 20100902, end: 20111101
  7. LIVACT [Concomitant]
     Dosage: DAILY DOSE 12.45 G
     Route: 048
     Dates: start: 20100721
  8. CANDESARTAN CILEXETIL [Concomitant]
     Dosage: DAILY DOSE 8 MG
     Route: 048
     Dates: start: 20101028
  9. NORVASC [Concomitant]
     Dosage: DAILY DOSE 5 MG
     Route: 048
     Dates: start: 20100908

REACTIONS (7)
  - MALAISE [None]
  - DYSPNOEA [None]
  - ALTERED STATE OF CONSCIOUSNESS [None]
  - HYPERCAPNIA [None]
  - GAIT DISTURBANCE [None]
  - ABDOMINAL PAIN UPPER [None]
  - RESPIRATORY FAILURE [None]
